FAERS Safety Report 9028203 (Version 1)
Quarter: 2013Q1

REPORT INFORMATION
  Report Type: Spontaneous
  Country: US (occurrence: None)
  Receive Date: 20130115
  Receipt Date: 20130115
  Transmission Date: 20140127
  Serious: Yes (Other)
  Sender: FDA-Public Use
  Company Number: None

PATIENT
  Age: 83 Year
  Sex: Female
  Weight: 58.97 kg

DRUGS (1)
  1. VERAPAMIL HCL [Suspect]
     Indication: ATRIAL FIBRILLATION
     Route: 048
     Dates: start: 20121223, end: 20130107

REACTIONS (11)
  - Confusional state [None]
  - Abdominal distension [None]
  - Local swelling [None]
  - Flatulence [None]
  - Abdominal pain upper [None]
  - Musculoskeletal pain [None]
  - Muscle spasms [None]
  - Fatigue [None]
  - Confusional state [None]
  - Asthenia [None]
  - Rash [None]
